FAERS Safety Report 4377549-3 (Version None)
Quarter: 2004Q2

REPORT INFORMATION
  Report Type: 
  Country: None (occurrence: None)
  Receive Date: 20040615
  Receipt Date: 20040609
  Transmission Date: 20050107
  Serious: Yes (Life-Threatening, Disabling)
  Sender: FDA-Public Use
  Company Number: US-MERCK-0406USA01060

PATIENT
  Sex: Male

DRUGS (1)
  1. VIOXX [Suspect]
     Indication: EPICONDYLITIS
     Route: 048

REACTIONS (3)
  - BLOOD PRESSURE ABNORMAL [None]
  - EPISTAXIS [None]
  - FEAR [None]
